FAERS Safety Report 9344915 (Version 2)
Quarter: 2013Q3

REPORT INFORMATION
  Report Type: Spontaneous
  Country: FR (occurrence: FR)
  Receive Date: 20130612
  Receipt Date: 20130911
  Transmission Date: 20140515
  Serious: Yes (Death)
  Sender: FDA-Public Use
  Company Number: FR-TEVA-411539ISR

PATIENT
  Age: 82 Year
  Sex: Male

DRUGS (1)
  1. FUROSEMIDE BIOGARAN [Suspect]

REACTIONS (2)
  - Pulmonary oedema [Fatal]
  - Somnolence [Unknown]
